FAERS Safety Report 14532083 (Version 1)
Quarter: 2018Q1

REPORT INFORMATION
  Report Type: Spontaneous
  Country: US (occurrence: US)
  Receive Date: 20180214
  Receipt Date: 20180214
  Transmission Date: 20180509
  Serious: Yes (Other)
  Sender: FDA-Public Use
  Company Number: US-DSJP-DSU-2017-133141

PATIENT

DRUGS (1)
  1. BENICAR HCT [Suspect]
     Active Substance: HYDROCHLOROTHIAZIDE\OLMESARTAN MEDOXOMIL
     Indication: PRODUCT USED FOR UNKNOWN INDICATION
     Dosage: 20-12.5MG, DAILY
     Route: 048
     Dates: start: 20140705

REACTIONS (6)
  - Haemorrhoids [Unknown]
  - Inflammatory bowel disease [Recovered/Resolved]
  - Helicobacter gastritis [Recovered/Resolved]
  - Coeliac disease [Recovered/Resolved]
  - Weight decreased [Unknown]
  - Crohn^s disease [Recovered/Resolved]

NARRATIVE: CASE EVENT DATE: 20091203
